FAERS Safety Report 23999066 (Version 1)
Quarter: 2024Q2

REPORT INFORMATION
  Report Type: Report from Study
  Country: US (occurrence: US)
  Receive Date: 20240621
  Receipt Date: 20240621
  Transmission Date: 20240716
  Serious: No
  Sender: FDA-Public Use
  Company Number: US-ACADIA PHARMACEUTICALS INC.-ACA-2021-PIM-004219

PATIENT
  Sex: Male

DRUGS (20)
  1. NUPLAZID [Suspect]
     Active Substance: PIMAVANSERIN TARTRATE
     Indication: Parkinson^s disease psychosis
     Dosage: 34 MILLIGRAM, QD
     Route: 065
     Dates: start: 20211118
  2. NUPLAZID [Suspect]
     Active Substance: PIMAVANSERIN TARTRATE
     Indication: Hallucination
     Dosage: 34 MILLIGRAM QD
     Route: 048
  3. NUPLAZID [Suspect]
     Active Substance: PIMAVANSERIN TARTRATE
     Indication: Delusion
  4. NUPLAZID [Suspect]
     Active Substance: PIMAVANSERIN TARTRATE
     Indication: Psychotic disorder
  5. NUPLAZID [Suspect]
     Active Substance: PIMAVANSERIN TARTRATE
     Indication: Parkinson^s disease
  6. DUOPA [Suspect]
     Active Substance: CARBIDOPA\LEVODOPA
  7. DUOPA [Concomitant]
     Active Substance: CARBIDOPA\LEVODOPA
  8. EXELON [Concomitant]
     Active Substance: RIVASTIGMINE TARTRATE
  9. OLANZAPINE [Concomitant]
     Active Substance: OLANZAPINE
  10. MELATONIN [Concomitant]
     Active Substance: MELATONIN
  11. SENNA LEAF [Concomitant]
     Active Substance: SENNA LEAF
  12. RESTASIS [Concomitant]
     Active Substance: CYCLOSPORINE
  13. FLUDROCORTISONE [Concomitant]
     Active Substance: FLUDROCORTISONE
  14. MYRBETRIQ [Concomitant]
     Active Substance: MIRABEGRON
  15. IBUPROFEN [Concomitant]
     Active Substance: IBUPROFEN
  16. MIRALAX [Concomitant]
     Active Substance: POLYETHYLENE GLYCOL 3350
  17. METAMUCIL [Concomitant]
     Active Substance: PLANTAGO SEED
  18. MIDODRINE [Concomitant]
     Active Substance: MIDODRINE
  19. ONDANSETRON [Concomitant]
     Active Substance: ONDANSETRON
  20. VITAMIN D3 [Concomitant]
     Active Substance: CHOLECALCIFEROL

REACTIONS (1)
  - Behaviour disorder [Recovered/Resolved]

NARRATIVE: CASE EVENT DATE: 20240101
